FAERS Safety Report 8087494-8 (Version None)
Quarter: 2012Q1

REPORT INFORMATION
  Report Type: 
  Country: None (occurrence: None)
  Receive Date: 20120128
  Receipt Date: 20110430
  Transmission Date: 20120608
  Serious: No
  Sender: FDA-Public Use
  Company Number: US-ABBOTT-11P-163-0722918-00

PATIENT
  Age: 65 Year
  Sex: Female

DRUGS (5)
  1. HUMIRA [Suspect]
     Indication: RHEUMATOID ARTHRITIS
     Dates: start: 20030101
  2. OXYBUTYNIN [Concomitant]
     Indication: BLADDER DISORDER
  3. METHOTREXATE [Concomitant]
     Indication: PRODUCT USED FOR UNKNOWN INDICATION
     Dosage: 10 WEEKLY
  4. ALPRAZOLAM [Concomitant]
     Indication: ANXIETY
     Dosage: 1/2 TO 1 TABLET PRN
  5. WELLBUTRIN [Concomitant]
     Indication: DEPRESSION

REACTIONS (5)
  - NASOPHARYNGITIS [None]
  - THROAT IRRITATION [None]
  - EYE PAIN [None]
  - GLOSSODYNIA [None]
  - PAIN [None]
